FAERS Safety Report 7685761-0 (Version None)
Quarter: 2011Q3

REPORT INFORMATION
  Report Type: 
  Country: None (occurrence: None)
  Receive Date: 20110815
  Receipt Date: 20110815
  Transmission Date: 20111222
  Serious: Yes (Hospitalization)
  Sender: FDA-Public Use
  Company Number: None

PATIENT
  Age: 28 Year
  Sex: Male
  Weight: 79.378 kg

DRUGS (1)
  1. PROSCAR [Suspect]
     Indication: ANDROGENETIC ALOPECIA
     Dosage: 1.25MG
     Route: 048
     Dates: start: 20000102, end: 20080901

REACTIONS (11)
  - SEMEN VOLUME DECREASED [None]
  - SEXUAL DYSFUNCTION [None]
  - URTICARIA [None]
  - COGNITIVE DISORDER [None]
  - URINE FLOW DECREASED [None]
  - ERECTILE DYSFUNCTION [None]
  - PENIS DISORDER [None]
  - FATIGUE [None]
  - PANIC ATTACK [None]
  - GENITAL PAIN [None]
  - LOSS OF LIBIDO [None]
